FAERS Safety Report 10528650 (Version 1)
Quarter: 2014Q4

REPORT INFORMATION
  Report Type: Spontaneous
  Country: US (occurrence: None)
  Receive Date: 20141017
  Receipt Date: 20141017
  Transmission Date: 20150528
  Serious: Yes (Hospitalization)
  Sender: FDA-Public Use
  Company Number: None

PATIENT

DRUGS (1)
  1. METHOTREXATE [Suspect]
     Active Substance: METHOTREXATE
     Route: 042

REACTIONS (6)
  - Acute kidney injury [None]
  - Ischaemic stroke [None]
  - Liver function test abnormal [None]
  - Renal failure [None]
  - Drug level increased [None]
  - Toxicity to various agents [None]
